FAERS Safety Report 6775444-3 (Version None)
Quarter: 2010Q2

REPORT INFORMATION
  Report Type: 
  Country: None (occurrence: None)
  Receive Date: 20100617
  Receipt Date: 20100607
  Transmission Date: 20101027
  Serious: Yes (Hospitalization, Disabling, Other)
  Sender: FDA-Public Use
  Company Number: US-MERCK-0911USA03514

PATIENT
  Age: 50 Year
  Sex: Female
  Weight: 86 kg

DRUGS (6)
  1. FOSAMAX [Suspect]
     Indication: STRESS FRACTURE
     Route: 048
     Dates: start: 19950101, end: 20010301
  2. FOSAMAX [Suspect]
     Route: 048
     Dates: start: 20010307, end: 20061205
  3. FOSAMAX [Suspect]
     Indication: OSTEOPOROSIS
     Route: 048
     Dates: start: 19950101, end: 20010301
  4. FOSAMAX [Suspect]
     Route: 048
     Dates: start: 20010307, end: 20061205
  5. XANAX [Concomitant]
     Indication: ANXIETY
     Route: 065
  6. LEXAPRO [Concomitant]
     Indication: DEPRESSION
     Route: 065

REACTIONS (35)
  - ANXIETY [None]
  - APICECTOMY [None]
  - ARTHRALGIA [None]
  - ARTHRITIS [None]
  - BACK DISORDER [None]
  - BACK INJURY [None]
  - BACK PAIN [None]
  - BALANCE DISORDER [None]
  - BONE DISORDER [None]
  - DEPRESSION [None]
  - DYSPNOEA [None]
  - EXOSTOSIS [None]
  - FALL [None]
  - FAT TISSUE INCREASED [None]
  - FEMUR FRACTURE [None]
  - FRACTURE NONUNION [None]
  - GAIT DISTURBANCE [None]
  - GLAUCOMA [None]
  - INTERVERTEBRAL DISC PROTRUSION [None]
  - LACERATION [None]
  - LOW TURNOVER OSTEOPATHY [None]
  - MORTON'S NEUROMA [None]
  - MUSCULOSKELETAL PAIN [None]
  - NECK INJURY [None]
  - OBESITY [None]
  - PAIN [None]
  - PAIN IN EXTREMITY [None]
  - PLANTAR FASCIITIS [None]
  - POST PROCEDURAL HAEMORRHAGE [None]
  - PROCEDURAL HYPOTENSION [None]
  - ROAD TRAFFIC ACCIDENT [None]
  - ROTATOR CUFF SYNDROME [None]
  - SPINAL OSTEOARTHRITIS [None]
  - SPONDYLOLISTHESIS [None]
  - UTERINE LEIOMYOMA [None]
